FAERS Safety Report 10094716 (Version 1)
Quarter: 2014Q2

REPORT INFORMATION
  Report Type: Spontaneous
  Country: US (occurrence: None)
  Receive Date: 20140421
  Receipt Date: 20140421
  Transmission Date: 20141212
  Serious: Yes (Hospitalization)
  Sender: FDA-Public Use
  Company Number: None

PATIENT
  Age: 65 Year
  Sex: Female
  Weight: 121 kg

DRUGS (1)
  1. PACLITAXEL [Suspect]
     Dates: start: 20140321

REACTIONS (2)
  - Pulmonary embolism [None]
  - Economic problem [None]
